FAERS Safety Report 4309997-1 (Version None)
Quarter: 2004Q1

REPORT INFORMATION
  Report Type: 
  Country: None (occurrence: None)
  Receive Date: 20040227
  Receipt Date: 20030905
  Transmission Date: 20041129
  Serious: Yes (Hospitalization)
  Sender: FDA-Public Use
  Company Number: 137554USA

PATIENT
  Age: 8 Year
  Sex: Male
  Weight: 25.4014 kg

DRUGS (4)
  1. TRAZODONE [Suspect]
     Indication: ABNORMAL BEHAVIOUR
     Dosage: 50 MILLIGRAM DAILY ORAL
     Route: 048
     Dates: start: 20030601, end: 20030904
  2. TRAZODONE [Suspect]
     Indication: DEPRESSION
     Dosage: 50 MILLIGRAM DAILY ORAL
     Route: 048
     Dates: start: 20030601, end: 20030904
  3. DEPAKOTE [Suspect]
     Indication: ABNORMAL BEHAVIOUR
     Dosage: 125 MILLIGRAM DAILY ORAL
     Route: 048
     Dates: start: 20030601, end: 20030904
  4. REMERON [Concomitant]

REACTIONS (6)
  - ARRHYTHMIA SUPRAVENTRICULAR [None]
  - ATRIAL TACHYCARDIA [None]
  - CHEST PAIN [None]
  - DYSPNOEA [None]
  - SUPRAVENTRICULAR TACHYCARDIA [None]
  - VENTRICULAR TACHYCARDIA [None]
